FAERS Safety Report 16454107 (Version 3)
Quarter: 2019Q4

REPORT INFORMATION
  Report Type: Spontaneous
  Country: US (occurrence: US)
  Receive Date: 20190619
  Receipt Date: 20191108
  Transmission Date: 20200122
  Serious: Yes (Other)
  Sender: FDA-Public Use
  Company Number: US-PFIZER INC-2019262672

PATIENT
  Age: 57 Year

DRUGS (4)
  1. VIAGRA [Suspect]
     Active Substance: SILDENAFIL CITRATE
     Dosage: 100 MG, AS NEEDED
     Route: 048
     Dates: start: 2008, end: 201208
  2. CIALIS [Suspect]
     Active Substance: TADALAFIL
     Indication: ERECTILE DYSFUNCTION
     Dosage: UNK
     Route: 048
     Dates: start: 20080125, end: 20080225
  3. VIAGRA [Suspect]
     Active Substance: SILDENAFIL CITRATE
     Indication: ERECTILE DYSFUNCTION
     Dosage: UNK
     Route: 048
     Dates: start: 20110401, end: 20110801
  4. CIALIS [Suspect]
     Active Substance: TADALAFIL
     Dosage: 20 MG, AS NEEDED
     Route: 048
     Dates: start: 200801, end: 2008

REACTIONS (2)
  - Malignant melanoma [Unknown]
  - Malignant melanoma in situ [Unknown]

NARRATIVE: CASE EVENT DATE: 20120501
